FAERS Safety Report 21666333 (Version 2)
Quarter: 2022Q4

REPORT INFORMATION
  Report Type: Spontaneous
  Country: DO (occurrence: DO)
  Receive Date: 20221201
  Receipt Date: 20221207
  Transmission Date: 20230113
  Serious: Yes (Hospitalization)
  Sender: FDA-Public Use
  Company Number: DO-SA-SAC20221128000935

PATIENT
  Age: 49 Year
  Sex: Male

DRUGS (1)
  1. LANTUS SOLOSTAR [Suspect]
     Active Substance: INSULIN GLARGINE
     Indication: Type 2 diabetes mellitus
     Dosage: 50 IU, QD
     Route: 058
     Dates: start: 2019

REACTIONS (5)
  - Pyrexia [Recovering/Resolving]
  - Skin ulcer [Recovering/Resolving]
  - Peripheral swelling [Recovering/Resolving]
  - Hyperglycaemia [Unknown]
  - Drug ineffective [Unknown]
